FAERS Safety Report 17416183 (Version 1)
Quarter: 2020Q1

REPORT INFORMATION
  Report Type: Spontaneous
  Country: US (occurrence: US)
  Receive Date: 20200130
  Receipt Date: 20200130
  Transmission Date: 20200409
  Serious: Yes (Other)
  Sender: FDA-Public Use
  Company Number: None

PATIENT
  Age: 80 Year
  Sex: Female
  Weight: 91.63 kg

DRUGS (1)
  1. HCTZ 37.5-25MG [Suspect]
     Active Substance: HYDROCHLOROTHIAZIDE
     Indication: HYPERTENSION
     Dosage: 37.5-25 MG DAILY
     Dates: start: 201906

REACTIONS (2)
  - Product substitution issue [None]
  - Skin discolouration [None]

NARRATIVE: CASE EVENT DATE: 20191002
